FAERS Safety Report 5480817-5 (Version None)
Quarter: 2007Q4

REPORT INFORMATION
  Report Type: 
  Country: None (occurrence: None)
  Receive Date: 20071009
  Receipt Date: 20070924
  Transmission Date: 20080405
  Serious: No
  Sender: FDA-Public Use
  Company Number: US-BOEHRINGER INGELHEIM PHARMACEUTICALS, INC.-2007-BP-18432BP

PATIENT
  Sex: Female

DRUGS (3)
  1. MIRAPEX [Suspect]
  2. MIRAPEX [Suspect]
     Route: 048
  3. MIRAPEX [Suspect]
     Route: 048

REACTIONS (3)
  - DIARRHOEA [None]
  - HYPERSENSITIVITY [None]
  - VOMITING [None]
